FAERS Safety Report 9179232 (Version 5)
Quarter: 2013Q3

REPORT INFORMATION
  Report Type: Spontaneous
  Country: JP (occurrence: JP)
  Receive Date: 20130321
  Receipt Date: 20130725
  Transmission Date: 20140515
  Serious: Yes (Hospitalization, Disabling, Other)
  Sender: FDA-Public Use
  Company Number: JP-ABBOTT-13P-087-1053924-00

PATIENT
  Age: 82 Year
  Sex: Male
  Weight: 57.2 kg

DRUGS (14)
  1. HUMIRA [Suspect]
     Indication: RHEUMATOID ARTHRITIS
     Route: 058
     Dates: start: 20120126, end: 20130131
  2. RHEUMATREX [Suspect]
     Indication: RHEUMATOID ARTHRITIS
     Route: 048
     Dates: start: 20111220, end: 20120507
  3. RHEUMATREX [Suspect]
     Dates: start: 20120508, end: 20130131
  4. FOLIC ACID [Concomitant]
     Indication: ADVERSE EVENT
     Route: 048
     Dates: start: 20110220, end: 20130131
  5. FOLIC ACID [Concomitant]
     Indication: PROPHYLAXIS
  6. SALAZOSULFAPYRIDINE [Concomitant]
     Indication: RHEUMATOID ARTHRITIS
     Route: 048
     Dates: end: 20121015
  7. PREDNISOLONE [Concomitant]
     Indication: RHEUMATOID ARTHRITIS
     Route: 048
     Dates: end: 20120220
  8. LANTUS [Concomitant]
     Indication: TYPE 2 DIABETES MELLITUS
     Route: 058
     Dates: start: 20120126, end: 20121127
  9. SULINDAC [Concomitant]
     Indication: RHEUMATOID ARTHRITIS
     Route: 048
     Dates: end: 20120730
  10. SITAGLIPTIN PHOSPHATE [Concomitant]
     Indication: TYPE 2 DIABETES MELLITUS
     Route: 048
     Dates: start: 20110301, end: 20130131
  11. DAIKENCHUTO [Concomitant]
     Indication: CONSTIPATION
     Route: 048
     Dates: start: 20120904, end: 20121126
  12. ACARBOSE [Concomitant]
     Indication: TYPE 2 DIABETES MELLITUS
     Route: 048
     Dates: start: 20120128, end: 20120618
  13. APIDRA [Concomitant]
     Indication: TYPE 2 DIABETES MELLITUS
     Route: 058
     Dates: start: 20120121, end: 20120221
  14. MAGNESIUM OXIDE [Concomitant]
     Indication: CONSTIPATION
     Route: 048
     Dates: start: 20121127, end: 20130131

REACTIONS (13)
  - Respiratory disorder [Unknown]
  - Respiratory disorder [Unknown]
  - Condition aggravated [Unknown]
  - Oxygen saturation abnormal [Unknown]
  - Cardiac failure [Recovering/Resolving]
  - Pulmonary oedema [Recovering/Resolving]
  - Cerebral infarction [Recovered/Resolved with Sequelae]
  - Pneumocystis jirovecii pneumonia [Recovered/Resolved]
  - Pneumonia [Unknown]
  - Blood beta-D-glucan abnormal [Unknown]
  - Respiratory tract haemorrhage [Unknown]
  - Delirium [Recovered/Resolved]
  - Immunodeficiency [Unknown]
